FAERS Safety Report 4697448-7 (Version None)
Quarter: 2005Q2

REPORT INFORMATION
  Report Type: 
  Country: None (occurrence: None)
  Receive Date: 20050621
  Receipt Date: 20050607
  Transmission Date: 20051028
  Serious: Yes (Hospitalization)
  Sender: FDA-Public Use
  Company Number: USA050393384

PATIENT
  Age: 71 Year
  Sex: Male
  Weight: 61 kg

DRUGS (7)
  1. FORTEO [Suspect]
     Indication: OSTEOPOROSIS
     Dosage: 20 UG DAY
     Dates: start: 20030302
  2. LIPITOR [Concomitant]
  3. PRILOSEC [Concomitant]
  4. COZAAR [Concomitant]
  5. NIACIN [Concomitant]
  6. MULTIVITAMINS NOS (MULTIVITAMINS NOS) [Concomitant]
  7. HYDROCHLOROTHIAZIDE [Concomitant]

REACTIONS (3)
  - CHEST PAIN [None]
  - CORONARY ARTERY DISEASE [None]
  - DYSPNOEA [None]
